FAERS Safety Report 5499668-0 (Version None)
Quarter: 2007Q4

REPORT INFORMATION
  Report Type: 
  Country: None (occurrence: None)
  Receive Date: 20071026
  Receipt Date: 20071017
  Transmission Date: 20080405
  Serious: Yes (Hospitalization)
  Sender: FDA-Public Use
  Company Number: FR-ROCHE-526343

PATIENT
  Age: 75 Year
  Sex: Female

DRUGS (3)
  1. BONIVA [Suspect]
     Indication: OSTEOPOROSIS
     Route: 048
     Dates: end: 20071010
  2. CORDARONE [Concomitant]
  3. ATACAND [Concomitant]
     Indication: HYPERTENSION

REACTIONS (2)
  - FALL [None]
  - HUMERUS FRACTURE [None]
